FAERS Safety Report 7281855-2 (Version None)
Quarter: 2011Q1

REPORT INFORMATION
  Report Type: 
  Country: None (occurrence: None)
  Receive Date: 20110208
  Receipt Date: 20110128
  Transmission Date: 20110831
  Serious: Yes (Other)
  Sender: FDA-Public Use
  Company Number: PHHY2011BE07416

PATIENT
  Age: 60 Year
  Sex: Female

DRUGS (1)
  1. ZOMETA [Suspect]
     Indication: BREAST CANCER
     Dosage: UNK
     Dates: start: 20060101, end: 20080101

REACTIONS (4)
  - TOOTH LOSS [None]
  - BONE DISORDER [None]
  - PAIN [None]
  - OSTEONECROSIS OF JAW [None]
